FAERS Safety Report 12997403 (Version 1)
Quarter: 2016Q4

REPORT INFORMATION
  Report Type: Spontaneous
  Country: US (occurrence: US)
  Receive Date: 20161202
  Receipt Date: 20161202
  Transmission Date: 20170207
  Serious: Yes (Hospitalization, Other)
  Sender: FDA-Public Use
  Company Number: None

PATIENT
  Age: 32 Year
  Sex: Female

DRUGS (1)
  1. HARVONI [Suspect]
     Active Substance: LEDIPASVIR\SOFOSBUVIR
     Indication: HEPATITIS C
     Dosage: 90-400MG TABS 1 DAILY PO
     Route: 048
     Dates: start: 20160510, end: 20160706

REACTIONS (6)
  - Nausea [None]
  - Weight decreased [None]
  - Depressed mood [None]
  - Hepatic failure [None]
  - Renal failure [None]
  - Appendicitis [None]

NARRATIVE: CASE EVENT DATE: 20161115
